FAERS Safety Report 9492054 (Version 1)
Quarter: 2013Q3

REPORT INFORMATION
  Report Type: Spontaneous
  Country: US (occurrence: US)
  Receive Date: 20130830
  Receipt Date: 20130830
  Transmission Date: 20140515
  Serious: No
  Sender: FDA-Public Use
  Company Number: US-TARO-2012P1065378

PATIENT
  Age: 76 Year
  Sex: Female
  Weight: 65.77 kg

DRUGS (3)
  1. METRONIDAZOLE GEL USP 0.75% [Suspect]
     Indication: ROSACEA
     Route: 061
  2. SYNTHROID [Concomitant]
  3. CRESTOR [Concomitant]

REACTIONS (1)
  - Skin tightness [Unknown]
